FAERS Safety Report 13653916 (Version 1)
Quarter: 2017Q2

REPORT INFORMATION
  Report Type: Spontaneous
  Country: US (occurrence: US)
  Receive Date: 20170614
  Receipt Date: 20170614
  Transmission Date: 20170830
  Serious: No
  Sender: FDA-Public Use
  Company Number: US-MAYNE PHARMA-2016MYN000992

PATIENT
  Age: 52 Year
  Sex: Male
  Weight: 90.7 kg

DRUGS (4)
  1. COARTEM [Concomitant]
     Active Substance: ARTEMETHER\LUMEFANTRINE
     Dosage: 20-120 FOUR TABLETS BID FOR 4 DAYS AND OFF FOR 11 DAYS
     Dates: start: 201611
  2. RIFAMPIN. [Concomitant]
     Active Substance: RIFAMPIN
     Dosage: 2 DF, BID ONE DAY A WEEK
     Dates: start: 201612
  3. DORYX [Suspect]
     Active Substance: DOXYCYCLINE HYCLATE
     Indication: LYME DISEASE
     Dosage: 1 IN AM AND 2 IN PM, 5 DAYS ON AND 5 DAYS OFF
     Route: 048
     Dates: start: 201611
  4. PRIMAQUINE [Suspect]
     Active Substance: PRIMAQUINE PHOSPHATE
     Indication: LYME DISEASE
     Dosage: 1 UNK, QD
     Route: 048
     Dates: start: 20161225

REACTIONS (2)
  - Rash [Recovering/Resolving]
  - Photosensitivity reaction [Recovering/Resolving]

NARRATIVE: CASE EVENT DATE: 201612
